FAERS Safety Report 5891424-4 (Version None)
Quarter: 2008Q3

REPORT INFORMATION
  Report Type: 
  Country: None (occurrence: None)
  Receive Date: 20080922
  Receipt Date: 20080911
  Transmission Date: 20090109
  Serious: Yes (Other)
  Sender: FDA-Public Use
  Company Number: NZ-MERCK-0809NZL00006

PATIENT
  Sex: Female

DRUGS (2)
  1. COZAAR [Suspect]
     Route: 048
     Dates: start: 20070501, end: 20080301
  2. LITHIUM CARBONATE [Suspect]
     Route: 065

REACTIONS (2)
  - DEAFNESS [None]
  - DRUG INTERACTION [None]
